FAERS Safety Report 10072822 (Version 1)
Quarter: 2014Q2

REPORT INFORMATION
  Report Type: Spontaneous
  Country: US (occurrence: US)
  Receive Date: 20140411
  Receipt Date: 20140411
  Transmission Date: 20141212
  Serious: Yes (Hospitalization)
  Sender: FDA-Public Use
  Company Number: US-B.I. PHARMACEUTICALS,INC./RIDGEFIELD-2014-BI-15859BP

PATIENT
  Age: 7 Decade
  Sex: Female

DRUGS (7)
  1. SPIRIVA [Suspect]
     Indication: CHRONIC OBSTRUCTIVE PULMONARY DISEASE
     Dosage: 18 MCG
     Route: 055
     Dates: start: 2009
  2. DIGOXIN [Concomitant]
     Route: 065
  3. DILTIAZEM [Concomitant]
     Indication: HYPERTENSION
     Route: 065
  4. GABAPENTIN [Concomitant]
     Indication: NERVE INJURY
     Route: 065
  5. WARFARIN [Concomitant]
     Route: 065
  6. METFORMIN [Concomitant]
     Indication: DIABETES MELLITUS
     Route: 065
  7. ASPIRIN [Concomitant]
     Dosage: (TABLET) STRENGTH: 81 MG;
     Route: 065

REACTIONS (2)
  - Heart rate irregular [Recovered/Resolved]
  - Cerebrovascular accident [Recovered/Resolved with Sequelae]
